FAERS Safety Report 6336209-X (Version None)
Quarter: 2009Q3

REPORT INFORMATION
  Report Type: 
  Country: None (occurrence: None)
  Receive Date: 20090901
  Receipt Date: 20090819
  Transmission Date: 20100115
  Serious: No
  Sender: FDA-Public Use
  Company Number: US-BRISTOL-MYERS SQUIBB COMPANY-14747638

PATIENT
  Age: 74 Year
  Sex: Female

DRUGS (1)
  1. DASATINIB [Suspect]

REACTIONS (1)
  - EFFUSION [None]
